FAERS Safety Report 14561845 (Version 3)
Quarter: 2018Q3

REPORT INFORMATION
  Report Type: Spontaneous
  Country: JP (occurrence: JP)
  Receive Date: 20180222
  Receipt Date: 20180903
  Transmission Date: 20181010
  Serious: Yes (Hospitalization, Other)
  Sender: FDA-Public Use
  Company Number: JP-ELI_LILLY_AND_COMPANY-JP201802008548

PATIENT
  Age: 62 Year
  Sex: Male
  Weight: 48 kg

DRUGS (4)
  1. ERBITUX [Suspect]
     Active Substance: CETUXIMAB
     Indication: HYPOPHARYNGEAL CANCER
     Dosage: 250 MG/M2, WEEKLY (1/W)
     Route: 041
     Dates: start: 20170712, end: 20180117
  2. ERBITUX [Suspect]
     Active Substance: CETUXIMAB
     Dosage: 250 MG/M2, WEEKLY (1/W)
     Route: 041
     Dates: start: 20180301, end: 201803
  3. CISPLATIN. [Suspect]
     Active Substance: CISPLATIN
     Indication: HYPOPHARYNGEAL CANCER
     Dosage: 110 MG, UNKNOWN
     Route: 065
  4. 5?FU                               /00098801/ [Concomitant]
     Active Substance: FLUOROURACIL
     Indication: HYPOPHARYNGEAL CANCER
     Dosage: 1100 MG, UNKNOWN

REACTIONS (6)
  - Skin lesion [Recovering/Resolving]
  - Rash [Recovering/Resolving]
  - Staphylococcal infection [Recovered/Resolved]
  - Pneumothorax [Recovering/Resolving]
  - Immunodeficiency [Recovering/Resolving]
  - Metastases to the mediastinum [Unknown]

NARRATIVE: CASE EVENT DATE: 20170721
